FAERS Safety Report 21892807 (Version 2)
Quarter: 2023Q2

REPORT INFORMATION
  Report Type: Report from Study
  Country: US (occurrence: US)
  Receive Date: 20230120
  Receipt Date: 20230518
  Transmission Date: 20230722
  Serious: Yes (Other)
  Sender: FDA-Public Use
  Company Number: US-JAZZ-2022-US-034664

PATIENT
  Sex: Female

DRUGS (2)
  1. XYWAV [Suspect]
     Active Substance: CALCIUM OXYBATE\MAGNESIUM OXYBATE\POTASSIUM OXYBATE\SODIUM OXYBATE
     Indication: Hypersomnia
     Dosage: 4.5 GRAM, QD
     Route: 048
  2. XYWAV [Suspect]
     Active Substance: CALCIUM OXYBATE\MAGNESIUM OXYBATE\POTASSIUM OXYBATE\SODIUM OXYBATE
     Dosage: 6 GRAM

REACTIONS (12)
  - Hallucination [Unknown]
  - Apathy [Unknown]
  - Hyperhidrosis [Unknown]
  - Respiration abnormal [Unknown]
  - Sleep paralysis [Unknown]
  - Brain fog [Recovered/Resolved]
  - Nausea [Unknown]
  - Headache [Unknown]
  - Snoring [Unknown]
  - Dizziness [Unknown]
  - Memory impairment [Unknown]
  - Therapeutic response unexpected [Unknown]
